FAERS Safety Report 7286153-9 (Version None)
Quarter: 2011Q1

REPORT INFORMATION
  Report Type: 
  Country: None (occurrence: None)
  Receive Date: 20110126
  Receipt Date: 20110118
  Transmission Date: 20110831
  Serious: Yes (Hospitalization, Other)
  Sender: FDA-Public Use
  Company Number: 2010SP041962

PATIENT
  Age: 30 Year
  Sex: Female
  Weight: 65.7716 kg

DRUGS (7)
  1. NUVARING [Suspect]
     Indication: DYSFUNCTIONAL UTERINE BLEEDING
     Dates: start: 20060406, end: 20080731
  2. NUVARING [Suspect]
     Indication: DYSMENORRHOEA
     Dates: start: 20060406, end: 20080731
  3. NUVARING [Suspect]
     Indication: MENSTRUATION IRREGULAR
     Dates: start: 20060406, end: 20080731
  4. NUVARING [Suspect]
     Indication: CONTRACEPTION
     Dates: start: 20060406, end: 20080731
  5. VICODIN [Concomitant]
  6. ANAPROX [Concomitant]
  7. NAPROSYN [Suspect]
     Indication: DYSMENORRHOEA
     Dates: start: 20070101

REACTIONS (17)
  - CEREBRAL THROMBOSIS [None]
  - SUBDURAL HAEMORRHAGE [None]
  - SUPERIOR SAGITTAL SINUS THROMBOSIS [None]
  - GRAND MAL CONVULSION [None]
  - DRUG HYPERSENSITIVITY [None]
  - DRUG SCREEN POSITIVE [None]
  - SUBARACHNOID HAEMORRHAGE [None]
  - DEEP VEIN THROMBOSIS [None]
  - DYSMENORRHOEA [None]
  - THROMBOSIS [None]
  - THYROID DISORDER [None]
  - EPILEPSY [None]
  - FALL [None]
  - CEREBRAL HAEMORRHAGE [None]
  - CONVULSION [None]
  - MIGRAINE [None]
  - FOOT DEFORMITY [None]
